FAERS Safety Report 10181152 (Version 1)
Quarter: 2014Q2

REPORT INFORMATION
  Report Type: Spontaneous
  Country: US (occurrence: US)
  Receive Date: 20140519
  Receipt Date: 20140519
  Transmission Date: 20141212
  Serious: No
  Sender: FDA-Public Use
  Company Number: US-AMGEN INC.-USASP2014026612

PATIENT
  Age: 69 Year
  Sex: Female

DRUGS (13)
  1. PROLIA [Suspect]
     Indication: OSTEOPOROSIS POSTMENOPAUSAL
     Dosage: UNK
     Route: 058
  2. MULTIVITAMIN                       /00097801/ [Concomitant]
  3. MULTI MINERAL PLUS [Concomitant]
     Dosage: UNK UNK, QD
  4. FISH OIL [Concomitant]
     Dosage: 1200 MG, BID
  5. OS CAL ULTRA PLUS [Concomitant]
     Dosage: 600 MG, UNK
  6. VITAMIN C                          /00008001/ [Concomitant]
     Dosage: 1000 MG, UNK
  7. BABY ASPIRIN [Concomitant]
     Dosage: 81 MG, QD
  8. CARVEDILOL [Concomitant]
     Dosage: 12.5 MG, QD
  9. SPIRONOLACTONE [Concomitant]
     Dosage: HALF OF 25MG PILL A DAY
  10. LISINOPRIL [Concomitant]
     Dosage: 2.5 MG, QD
  11. PRAVASTATIN [Concomitant]
     Dosage: 10 MG, QD
  12. PREMARIN [Concomitant]
     Dosage: 0.3 MG, QOD
  13. ATARAX                             /00058401/ [Concomitant]
     Indication: PRURITUS
     Dosage: 10 MG, Q3WK

REACTIONS (5)
  - Eye irritation [Recovered/Resolved]
  - Incorrect route of drug administration [Unknown]
  - Injection site pain [Recovered/Resolved]
  - Eye pain [Recovered/Resolved]
  - Visual impairment [Unknown]
